FAERS Safety Report 8342690-7 (Version None)
Quarter: 2012Q2

REPORT INFORMATION
  Report Type: 
  Country: None (occurrence: None)
  Receive Date: 20120502
  Receipt Date: 20120416
  Transmission Date: 20120825
  Serious: Yes (Hospitalization)
  Sender: FDA-Public Use
  Company Number: TPA2011A08694

PATIENT
  Age: 55 Year
  Sex: Male

DRUGS (6)
  1. SODIUM BICARBONATE IN PLASTIC CONTAINER [Concomitant]
  2. CARVEDILOL [Concomitant]
  3. COLCHICINE [Concomitant]
  4. AMLODIPINE [Concomitant]
  5. ZOLPIDEM [Concomitant]
  6. FEBURIC (FEBUXOSTAT) [Suspect]
     Indication: GOUTY ARTHRITIS
     Dosage: 80 MG, ORAL
     Route: 048
     Dates: start: 20110531, end: 20110822

REACTIONS (2)
  - CHEST PAIN [None]
  - DUODENAL ULCER [None]
